FAERS Safety Report 8261847-7 (Version None)
Quarter: 2012Q2

REPORT INFORMATION
  Report Type: 
  Country: None (occurrence: None)
  Receive Date: 20120402
  Receipt Date: 20120323
  Transmission Date: 20120825
  Serious: No
  Sender: FDA-Public Use
  Company Number: 2012SP004523

PATIENT
  Age: 31 Year
  Sex: Female
  Weight: 130 kg

DRUGS (3)
  1. CERAZETTE (DESOGESTREL /00754001/) [Suspect]
     Indication: CONSTIPATION
     Dates: start: 20050101, end: 20110101
  2. DULOXETINE HYDROCHLORIDE [Concomitant]
  3. TOPIRAMATE [Concomitant]

REACTIONS (2)
  - MIGRAINE [None]
  - DEPRESSION [None]
